FAERS Safety Report 15733844 (Version 1)
Quarter: 2018Q4

REPORT INFORMATION
  Report Type: Spontaneous
  Country: US (occurrence: US)
  Receive Date: 20181218
  Receipt Date: 20181218
  Transmission Date: 20190205
  Serious: No
  Sender: FDA-Public Use
  Company Number: US-ASTRAZENECA-2018SF57344

PATIENT
  Sex: Male
  Weight: 65.8 kg

DRUGS (13)
  1. LEUCINE [Concomitant]
     Active Substance: LEUCINE
     Dosage: UNKNOWN
     Route: 048
  2. CRESTOR [Suspect]
     Active Substance: ROSUVASTATIN CALCIUM
     Indication: CORONARY ARTERY DISEASE
     Dosage: GENERIC, 5 MG DAILY
     Route: 048
     Dates: start: 201807
  3. ACETYLCARNITINE [Concomitant]
     Active Substance: ACETYLCARNITINE
     Dosage: UNKNOWN
     Route: 048
  4. CARNOSINE [Concomitant]
     Active Substance: CARNOSINE
     Dosage: UNKNOWN
     Route: 048
  5. METAMUCIL [Concomitant]
     Active Substance: PLANTAGO SEED
     Dosage: 1TSP DAILY
     Route: 048
  6. MULTIVITAMIN- CENTRUM SENIOR FOR OVER 50 [Concomitant]
     Dosage: UNKNOWN
     Route: 048
  7. VITAMIN C COMPLEX WITH BIFLAVONOIDS [Concomitant]
     Route: 048
  8. HAWTHORN BERRY [Concomitant]
     Dosage: UNKNOWN
     Route: 048
  9. VITAMIN B COMPLEX [Concomitant]
     Active Substance: CYANOCOBALAMIN\DEXPANTHENOL\NIACINAMIDE\PYRIDOXINE HYDROCHLORIDE\RIBOFLAVIN 5^-PHOSPHATE SODIUM\THIAMINE HYDROCHLORIDE\VITAMIN B COMPLEX
     Dosage: UNKNOWN
     Route: 048
  10. VITAMIN D [Concomitant]
     Active Substance: CHOLECALCIFEROL
     Dosage: 5000USP UNITS DAILY
     Route: 048
  11. CALCIUM [Concomitant]
     Active Substance: CALCIUM
     Dosage: 500.0MG UNKNOWN
     Route: 048
  12. CITRACAL [Concomitant]
     Active Substance: CALCIUM CITRATE
     Route: 048
  13. COENZYME Q10 [Concomitant]
     Active Substance: UBIDECARENONE
     Route: 048

REACTIONS (2)
  - Diarrhoea [Not Recovered/Not Resolved]
  - Diverticulum [Unknown]
